FAERS Safety Report 6910969-9 (Version None)
Quarter: 2010Q3

REPORT INFORMATION
  Report Type: 
  Country: None (occurrence: None)
  Receive Date: 20100806
  Receipt Date: 20100805
  Transmission Date: 20110219
  Serious: Yes (Other)
  Sender: FDA-Public Use
  Company Number: A0842680A

PATIENT
  Age: 56 Year
  Sex: Male
  Weight: 81.8 kg

DRUGS (16)
  1. LAMICTAL [Suspect]
     Dosage: 400MG PER DAY
     Route: 048
     Dates: start: 20090101
  2. LEVETIRACETAM [Suspect]
     Indication: CEREBRAL ATROPHY
     Route: 065
     Dates: start: 20081201, end: 20090101
  3. NEURONTIN [Suspect]
     Indication: PRODUCT USED FOR UNKNOWN INDICATION
     Dosage: 2700MG PER DAY
     Route: 065
  4. DILANTIN [Suspect]
     Indication: CEREBRAL ATROPHY
     Route: 065
     Dates: start: 20081201, end: 20090101
  5. SERTRALINE HYDROCHLORIDE [Suspect]
     Indication: PRODUCT USED FOR UNKNOWN INDICATION
     Dosage: 75MG PER DAY
     Route: 065
  6. EFFEXOR XR [Suspect]
     Indication: DEPRESSION
     Dosage: 187.5MG PER DAY
     Route: 048
     Dates: start: 20070101
  7. DEPAKOTE [Concomitant]
  8. LOVENOX [Concomitant]
  9. LISINOPRIL [Concomitant]
     Dosage: 10MG PER DAY
     Route: 048
  10. SIMVASTATIN [Concomitant]
     Dosage: 40MG PER DAY
  11. COLACE [Concomitant]
     Dosage: 100MG THREE TIMES PER DAY
  12. BACLOFEN [Concomitant]
     Dosage: 10MG TWICE PER DAY
     Route: 048
  13. TEMAZEPAM [Concomitant]
     Dosage: 15MG AS REQUIRED
  14. LACTULOSE [Concomitant]
  15. BECONASE AQ [Concomitant]
     Dosage: 1SPR TWICE PER DAY
     Route: 045
  16. HEPARIN [Concomitant]

REACTIONS (8)
  - CONVULSION [None]
  - DRUG HYPERSENSITIVITY [None]
  - DRUG INEFFECTIVE [None]
  - GAMMA RADIATION THERAPY [None]
  - OFF LABEL USE [None]
  - POSTICTAL STATE [None]
  - THERAPEUTIC RESPONSE DECREASED [None]
  - VASCULAR ANOMALY [None]
